FAERS Safety Report 8270496-6 (Version None)
Quarter: 2012Q2

REPORT INFORMATION
  Report Type: 
  Country: None (occurrence: None)
  Receive Date: 20120405
  Receipt Date: 20120326
  Transmission Date: 20120825
  Serious: Yes (Hospitalization, Other)
  Sender: FDA-Public Use
  Company Number: 2012P1011289

PATIENT
  Age: 68 Year
  Sex: Female

DRUGS (4)
  1. SOTALOL HCL [Concomitant]
  2. WARFARIN SODIUM [Concomitant]
  3. PROPYLTHIOURACIL [Suspect]
     Indication: HYPERTHYROIDISM
     Dosage: 150 MG;QD
     Dates: start: 20070301, end: 20071201
  4. ENALAPRIL MALEATE [Concomitant]

REACTIONS (6)
  - PRURITUS [None]
  - SUPRAVENTRICULAR EXTRASYSTOLES [None]
  - DYSPNOEA [None]
  - INTERSTITIAL LUNG DISEASE [None]
  - ORGANISING PNEUMONIA [None]
  - TACHYCARDIA [None]
